FAERS Safety Report 25604055 (Version 1)
Quarter: 2025Q3

REPORT INFORMATION
  Report Type: Spontaneous
  Country: US (occurrence: US)
  Receive Date: 20250725
  Receipt Date: 20250725
  Transmission Date: 20251020
  Serious: No
  Sender: ALEXION PHARMACEUTICALS
  Company Number: US-AstraZeneca-CH-00916911A

PATIENT

DRUGS (1)
  1. WAINUA [Suspect]
     Active Substance: EPLONTERSEN
     Dosage: UNK, QMONTH
     Route: 065

REACTIONS (1)
  - Visual impairment [Unknown]
